FAERS Safety Report 8964433 (Version 8)
Quarter: 2015Q1

REPORT INFORMATION
  Report Type: Report from Study
  Country: CA (occurrence: CA)
  Receive Date: 20121213
  Receipt Date: 20150122
  Transmission Date: 20150721
  Serious: Yes (Death, Hospitalization, Other)
  Sender: FDA-Public Use
  Company Number: CA-ROCHE-1167339

PATIENT
  Age: 79 Year
  Sex: Female
  Weight: 67.1 kg

DRUGS (22)
  1. NIZATIDINE. [Concomitant]
     Active Substance: NIZATIDINE
     Route: 065
  2. VITAMIN C [Concomitant]
     Active Substance: ASCORBIC ACID
  3. PLAVIX [Suspect]
     Active Substance: CLOPIDOGREL BISULFATE
     Indication: PRODUCT USED FOR UNKNOWN INDICATION
     Route: 065
     Dates: end: 201311
  4. VENLAFAXINE [Concomitant]
     Active Substance: VENLAFAXINE HYDROCHLORIDE
  5. GRAVOL [Concomitant]
     Active Substance: DIMENHYDRINATE
     Route: 065
     Dates: start: 201311
  6. PROLIA [Concomitant]
     Active Substance: DENOSUMAB
  7. ACETAMINOPHEN. [Concomitant]
     Active Substance: ACETAMINOPHEN
     Route: 048
     Dates: start: 20100917
  8. RITUXAN [Suspect]
     Active Substance: RITUXIMAB
     Dosage: DAY 1,15
     Route: 042
     Dates: start: 20130123, end: 20140505
  9. PREDNISONE. [Concomitant]
     Active Substance: PREDNISONE
     Route: 065
  10. PLAVIX [Suspect]
     Active Substance: CLOPIDOGREL BISULFATE
     Route: 065
     Dates: start: 201410
  11. DIPHENHYDRAMINE HCL [Concomitant]
     Active Substance: DIPHENHYDRAMINE HYDROCHLORIDE
     Indication: PREMEDICATION
     Route: 042
     Dates: start: 20111103
  12. TEVA-VENLAFAXINE [Concomitant]
  13. DIPHENHYDRAMINE HCL [Concomitant]
     Active Substance: DIPHENHYDRAMINE HYDROCHLORIDE
     Route: 048
     Dates: start: 20100917
  14. BABY ASPIRIN [Concomitant]
     Active Substance: ASPIRIN
  15. RITUXAN [Suspect]
     Active Substance: RITUXIMAB
     Indication: RHEUMATOID ARTHRITIS
     Route: 042
     Dates: start: 20100917
  16. RITUXAN [Suspect]
     Active Substance: RITUXIMAB
     Route: 042
     Dates: start: 20130110
  17. TRAZODONE [Suspect]
     Active Substance: TRAZODONE HYDROCHLORIDE
     Indication: PRODUCT USED FOR UNKNOWN INDICATION
     Route: 065
     Dates: end: 201310
  18. VERAPAMIL HCL [Concomitant]
     Active Substance: VERAPAMIL HYDROCHLORIDE
  19. TYLENOL #4 [Concomitant]
  20. URSODIOL. [Concomitant]
     Active Substance: URSODIOL
     Indication: PRODUCT USED FOR UNKNOWN INDICATION
  21. TYLENOL [Concomitant]
     Active Substance: ACETAMINOPHEN
     Indication: ARTHRALGIA
  22. METHYLPREDNISOLONE. [Concomitant]
     Active Substance: METHYLPREDNISOLONE
     Indication: PREMEDICATION
     Route: 042
     Dates: start: 20100917

REACTIONS (20)
  - Death [Fatal]
  - Myocardial infarction [Unknown]
  - Diarrhoea [Not Recovered/Not Resolved]
  - Gastrointestinal infection [Not Recovered/Not Resolved]
  - Dementia [Unknown]
  - Arthralgia [Not Recovered/Not Resolved]
  - Influenza [Recovered/Resolved]
  - Disorientation [Unknown]
  - Cerebrovascular accident [Recovered/Resolved]
  - Hypotension [Unknown]
  - Balance disorder [Unknown]
  - Retching [Unknown]
  - Gastrointestinal disorder [Unknown]
  - Weight increased [Unknown]
  - Joint swelling [Unknown]
  - Transient ischaemic attack [Unknown]
  - Pelvic fracture [Recovered/Resolved]
  - Atrial fibrillation [Unknown]
  - Depression [Unknown]
  - Headache [Recovered/Resolved]

NARRATIVE: CASE EVENT DATE: 2011
